FAERS Safety Report 10420783 (Version 1)
Quarter: 2014Q3

REPORT INFORMATION
  Report Type: Report from Study
  Country: US (occurrence: None)
  Receive Date: 20140804
  Receipt Date: 20140804
  Transmission Date: 20150326
  Serious: No
  Sender: FDA-Public Use
  Company Number: 2013US008839

PATIENT
  Age: 64 Year
  Sex: Female
  Weight: 65.3 kg

DRUGS (8)
  1. GLASSIA [Suspect]
     Active Substance: .ALPHA.1-PROTEINASE INHIBITOR HUMAN
     Indication: ALPHA-1 ANTI-TRYPSIN DEFICIENCY
     Route: 042
     Dates: start: 201309
  2. PRO-AIR (PROCATEROL HYDROCHLORIDE) [Concomitant]
  3. HYDROCHLOROTHIAZIDE (HYDROCHLOROTHIAZIDE) [Concomitant]
     Active Substance: HYDROCHLOROTHIAZIDE
  4. BACLOFEN (BACLOFEN) [Concomitant]
     Active Substance: BACLOFEN
  5. ADVAIR DISKUS [Concomitant]
     Active Substance: FLUTICASONE PROPIONATE\SALMETEROL XINAFOATE
  6. LEVOTHYROXINE (LEVOTHYROXINE) [Concomitant]
     Active Substance: LEVOTHYROXINE
  7. REBIF [Concomitant]
     Active Substance: INTERFERON BETA-1A
  8. CITALOPRAM (CITALOPRAM) [Concomitant]
     Active Substance: CITALOPRAM HYDROBROMIDE

REACTIONS (2)
  - Cough [None]
  - Headache [None]
